FAERS Safety Report 9656513 (Version 2)
Quarter: 2013Q4

REPORT INFORMATION
  Report Type: Spontaneous
  Country: US (occurrence: US)
  Receive Date: 20131030
  Receipt Date: 20131217
  Transmission Date: 20140711
  Serious: Yes (Other)
  Sender: FDA-Public Use
  Company Number: US-BAYER-2013-131466

PATIENT
  Age: 25 Year
  Sex: Female
  Weight: 65.76 kg

DRUGS (5)
  1. MIRENA [Suspect]
     Indication: CONTRACEPTION
     Dosage: 20 MCG/24HR, CONT
     Route: 015
     Dates: start: 20110919, end: 20121113
  2. ORTHO-NOVUM 0.5 [Concomitant]
     Dosage: UNK
     Dates: start: 20120625
  3. LEVOTHYROXINE [Concomitant]
     Dosage: 25 UNK, UNK
     Dates: start: 20120604, end: 20120723
  4. CETIRIZINE HYDROCHLORIDE [Concomitant]
     Dosage: 10 MG, UNK
     Dates: start: 20120830, end: 20121015
  5. SYNTHROID [Concomitant]
     Indication: HYPOTHYROIDISM

REACTIONS (5)
  - Uterine perforation [None]
  - Injury [None]
  - Pain [None]
  - Emotional distress [None]
  - Device dislocation [None]
